FAERS Safety Report 6051062-X (Version None)
Quarter: 2009Q1

REPORT INFORMATION
  Report Type: 
  Country: None (occurrence: None)
  Receive Date: 20090126
  Receipt Date: 20090116
  Transmission Date: 20090719
  Serious: Yes (Life-Threatening)
  Sender: FDA-Public Use
  Company Number: JP-EISAI MEDICAL RESEARCH-E2090-00638-SPO-JP

PATIENT
  Age: 69 Year
  Sex: Male

DRUGS (12)
  1. EXCEGRAN [Suspect]
     Indication: CONVULSION
     Route: 048
     Dates: start: 20081125, end: 20081227
  2. EXCEGRAN [Suspect]
     Route: 048
     Dates: start: 20081218, end: 20081225
  3. GASMOTIN [Suspect]
     Indication: ANOREXIA
     Route: 048
     Dates: start: 20081218, end: 20081222
  4. DEPAS [Suspect]
     Indication: DRUG USE FOR UNKNOWN INDICATION
     Route: 048
  5. ZYLORIC [Suspect]
     Indication: DRUG USE FOR UNKNOWN INDICATION
     Route: 048
  6. PAXIL [Suspect]
     Indication: DRUG USE FOR UNKNOWN INDICATION
     Route: 048
     Dates: end: 20081218
  7. PAXIL [Suspect]
     Route: 048
     Dates: start: 20081218, end: 20081225
  8. CAMOSTATE [Suspect]
     Indication: DRUG USE FOR UNKNOWN INDICATION
     Route: 048
     Dates: end: 20081218
  9. FOIPAN [Suspect]
     Indication: DRUG USE FOR UNKNOWN INDICATION
     Route: 048
     Dates: start: 20081218
  10. MYSLEE [Suspect]
     Indication: INSOMNIA
     Route: 048
     Dates: start: 20081118
  11. TAKEPRON [Suspect]
     Indication: DYSPEPSIA
     Route: 048
     Dates: start: 20081218
  12. MAGMITT [Concomitant]
     Dosage: UNKNOWN
     Route: 048
     Dates: start: 20081215

REACTIONS (3)
  - ALANINE AMINOTRANSFERASE INCREASED [None]
  - ASPARTATE AMINOTRANSFERASE INCREASED [None]
  - WHITE BLOOD CELL COUNT DECREASED [None]
